FAERS Safety Report 6432374-4 (Version None)
Quarter: 2009Q4

REPORT INFORMATION
  Report Type: 
  Country: None (occurrence: None)
  Receive Date: 20091109
  Receipt Date: 20091007
  Transmission Date: 20100525
  Serious: No
  Sender: FDA-Public Use
  Company Number: US-BAYER-200935931NA

PATIENT
  Age: 32 Year
  Sex: Female
  Weight: 50 kg

DRUGS (1)
  1. MIRENA [Suspect]
     Indication: CONTRACEPTION
     Dosage: CONTINUOUS
     Route: 015
     Dates: start: 20081218

REACTIONS (4)
  - ABDOMINAL PAIN LOWER [None]
  - MENSTRUATION IRREGULAR [None]
  - METRORRHAGIA [None]
  - ORGASMIC SENSATION DECREASED [None]
